FAERS Safety Report 4815659-4 (Version None)
Quarter: 2005Q4

REPORT INFORMATION
  Report Type: 
  Country: None (occurrence: None)
  Receive Date: 20051027
  Receipt Date: 20051014
  Transmission Date: 20060501
  Serious: Yes (Other)
  Sender: FDA-Public Use
  Company Number: 2005RR-00944

PATIENT
  Sex: Female

DRUGS (6)
  1. CLOMIPRAMINE HCL [Suspect]
  2. SENNA(SENNA) [Suspect]
  3. LACTULOSE [Suspect]
  4. CYCLIZINE (CYCLIZINE) [Suspect]
  5. GAVISCON [Suspect]
  6. AMOXICILLIN [Suspect]

REACTIONS (8)
  - BLOOD PRESSURE INCREASED [None]
  - CAESAREAN SECTION [None]
  - CONSTIPATION [None]
  - DYSPEPSIA [None]
  - GASTROOESOPHAGEAL REFLUX DISEASE [None]
  - PRE-ECLAMPSIA [None]
  - PREMATURE LABOUR [None]
  - VOMITING [None]
